FAERS Safety Report 16996015 (Version 2)
Quarter: 2019Q4

REPORT INFORMATION
  Report Type: Spontaneous
  Country: DE (occurrence: DE)
  Receive Date: 20191105
  Receipt Date: 20191120
  Transmission Date: 20200122
  Serious: Yes (Hospitalization, Other)
  Sender: FDA-Public Use
  Company Number: DE-ALLERGAN-1943963US

PATIENT
  Sex: Male

DRUGS (2)
  1. LUMIGAN [Suspect]
     Active Substance: BIMATOPROST
     Indication: GLAUCOMA
     Dosage: UNK, QHS
  2. HELIVISION GEL [Concomitant]
     Dosage: UNK, QD

REACTIONS (10)
  - Growth of eyelashes [Unknown]
  - Umbilical hernia [Unknown]
  - Cardiac output decreased [Unknown]
  - Dry eye [Not Recovered/Not Resolved]
  - Chronic obstructive pulmonary disease [Unknown]
  - Product quality issue [Unknown]
  - Dyspnoea [Unknown]
  - Eye pruritus [Not Recovered/Not Resolved]
  - Eye irritation [Unknown]
  - Erythema of eyelid [Unknown]

NARRATIVE: CASE EVENT DATE: 201909
